FAERS Safety Report 15518502 (Version 2)
Quarter: 2018Q4

REPORT INFORMATION
  Report Type: Spontaneous
  Country: DK (occurrence: DK)
  Receive Date: 20181017
  Receipt Date: 20181019
  Transmission Date: 20190205
  Serious: Yes (Hospitalization, Disabling, Other)
  Sender: FDA-Public Use
  Company Number: DK-PFIZER INC-2018415784

PATIENT
  Age: 67 Year
  Sex: Female

DRUGS (16)
  1. HEXAMYCIN [Suspect]
     Active Substance: GENTAMICIN
     Indication: BACTERIAL INFECTION
     Dosage: UNK
     Dates: start: 20160327, end: 20160328
  2. GENTAMYCIN [Suspect]
     Active Substance: GENTAMICIN
     Dosage: UNK
  3. TAZOCIN [Suspect]
     Active Substance: PIPERACILLIN SODIUM\TAZOBACTAM SODIUM
     Indication: PYELONEPHRITIS
     Dosage: UNK
  4. PREDNISOLONE. [Suspect]
     Active Substance: PREDNISOLONE
     Dosage: 7.5 MG, 1X/DAY
     Dates: start: 20160608, end: 20161207
  5. AMPICILLIN [Suspect]
     Active Substance: AMPICILLIN
     Indication: BACTERIAL INFECTION
     Dosage: UNK
     Dates: start: 20160327, end: 20160328
  6. AMPICILLIN [Suspect]
     Active Substance: AMPICILLIN
     Dosage: UNK
     Dates: start: 20160401
  7. DICILLIN [Suspect]
     Active Substance: DICLOXACILLIN SODIUM
     Indication: SKELETAL INJURY
     Dosage: UNK
     Dates: start: 20160318
  8. PREDNISOLONE. [Suspect]
     Active Substance: PREDNISOLONE
     Dosage: UNK (HIGH DOSES)
     Dates: start: 20160413
  9. CIPROFLOXACIN. [Concomitant]
     Active Substance: CIPROFLOXACIN
     Dosage: 250 MG, 2X/DAY
     Dates: start: 20160403
  10. VANCOMYCIN HCL [Suspect]
     Active Substance: VANCOMYCIN HYDROCHLORIDE
     Dosage: UNK
  11. CIPROFLOXACIN. [Concomitant]
     Active Substance: CIPROFLOXACIN
     Dosage: UNK
     Dates: start: 20160328
  12. HEXAMYCIN [Suspect]
     Active Substance: GENTAMICIN
     Dosage: UNK
     Dates: start: 20160401
  13. VANCOMYCIN HCL [Suspect]
     Active Substance: VANCOMYCIN HYDROCHLORIDE
     Indication: PYELONEPHRITIS
     Dosage: UNK
     Dates: start: 20160405
  14. TAZOCIN [Suspect]
     Active Substance: PIPERACILLIN SODIUM\TAZOBACTAM SODIUM
     Dosage: UNK UNK, 2X/DAY
     Dates: start: 201603, end: 20160405
  15. PREDNISOLONE. [Suspect]
     Active Substance: PREDNISOLONE
     Dosage: 10 MG, 1X/DAY
     Dates: start: 20160518
  16. DICILLIN [Suspect]
     Active Substance: DICLOXACILLIN SODIUM
     Indication: WOUND TREATMENT
     Dosage: UNK
     Dates: start: 20160327, end: 20160328

REACTIONS (4)
  - Tubulointerstitial nephritis [Recovered/Resolved]
  - Pyelonephritis [Unknown]
  - Acute kidney injury [Unknown]
  - Blood creatinine increased [Unknown]

NARRATIVE: CASE EVENT DATE: 2016
